FAERS Safety Report 17536860 (Version 1)
Quarter: 2020Q1

REPORT INFORMATION
  Report Type: Spontaneous
  Country: US (occurrence: US)
  Receive Date: 20200313
  Receipt Date: 20200313
  Transmission Date: 20200409
  Serious: Yes (Other)
  Sender: FDA-Public Use
  Company Number: NVSC2020US067587

PATIENT
  Sex: Female

DRUGS (1)
  1. DABRAFENIB [Suspect]
     Active Substance: DABRAFENIB
     Indication: LANGERHANS^ CELL HISTIOCYTOSIS
     Dosage: 5 MG/KG, BID
     Route: 048

REACTIONS (3)
  - Product use in unapproved indication [Unknown]
  - Langerhans^ cell histiocytosis [Unknown]
  - Malignant neoplasm progression [Unknown]
